FAERS Safety Report 7323196-0 (Version None)
Quarter: 2011Q1

REPORT INFORMATION
  Report Type: 
  Country: None (occurrence: None)
  Receive Date: 20110301
  Receipt Date: 20110224
  Transmission Date: 20110831
  Serious: Yes (Hospitalization)
  Sender: FDA-Public Use
  Company Number: DE-SANOFI-AVENTIS-2011SA007192

PATIENT
  Age: 61 Year
  Sex: Female
  Weight: 80 kg

DRUGS (14)
  1. OXALIPLATIN [Suspect]
     Route: 041
     Dates: start: 20110202, end: 20110202
  2. 5-FU [Suspect]
     Route: 041
     Dates: start: 20100729, end: 20100729
  3. LEUCOVORIN CALCIUM [Suspect]
     Route: 041
     Dates: start: 20100729, end: 20100729
  4. JODTHYROX [Concomitant]
     Dosage: 1-0-0-0
     Route: 048
  5. OMEPRAZOLE [Concomitant]
     Dosage: 1-0-1-0
  6. 5-FU [Suspect]
     Route: 041
     Dates: start: 20110202, end: 20110202
  7. OXALIPLATIN [Suspect]
     Route: 041
     Dates: start: 20100729, end: 20100729
  8. TAXOTERE [Suspect]
     Route: 041
     Dates: start: 20100729, end: 20100729
  9. METOCLOPRAMIDE HCL [Concomitant]
  10. CALCIUM [Concomitant]
     Dosage: 1-1-1-0
  11. LOPERAMIDE [Concomitant]
  12. LEUCOVORIN CALCIUM [Suspect]
     Route: 041
     Dates: start: 20110202, end: 20110202
  13. ROCALTROL [Concomitant]
     Dosage: 1-1-0-0
  14. TAXOTERE [Suspect]
     Route: 041
     Dates: start: 20110202, end: 20110202

REACTIONS (4)
  - CYTOKINE RELEASE SYNDROME [None]
  - PYREXIA [None]
  - TACHYCARDIA [None]
  - CHILLS [None]
